FAERS Safety Report 5804201-7 (Version None)
Quarter: 2008Q3

REPORT INFORMATION
  Report Type: 
  Country: None (occurrence: None)
  Receive Date: 20080709
  Receipt Date: 20080703
  Transmission Date: 20090109
  Serious: Yes (Hospitalization)
  Sender: FDA-Public Use
  Company Number: FR-JNJFOC-20080501039

PATIENT
  Sex: Female
  Weight: 69 kg

DRUGS (12)
  1. REMINYL LP [Suspect]
     Route: 048
  2. REMINYL LP [Suspect]
     Dosage: 16 MG AND 24 MG ALTERNATING DAYS
     Route: 048
  3. REMINYL LP [Suspect]
     Route: 048
  4. REMINYL LP [Suspect]
     Indication: DEMENTIA ALZHEIMER'S TYPE
     Route: 048
  5. DEROXAT [Interacting]
     Indication: DEPRESSION
     Route: 048
     Dates: start: 20070715, end: 20080417
  6. PREVISCAN [Concomitant]
     Indication: PERIPHLEBITIS
  7. ATENOLOL [Concomitant]
  8. ATENOLOL [Concomitant]
     Indication: HYPERTENSION
  9. COAPROVEL [Concomitant]
     Indication: HYPERTENSION
  10. ALDACTONE [Concomitant]
     Indication: HYPERTENSION
  11. FELODIPINE [Concomitant]
     Indication: HYPERTENSION
  12. RILMENIDINE [Concomitant]

REACTIONS (3)
  - CONFUSIONAL STATE [None]
  - DRUG INTERACTION [None]
  - GRAND MAL CONVULSION [None]
